FAERS Safety Report 22699957 (Version 3)
Quarter: 2025Q4

REPORT INFORMATION
  Report Type: Other
  Country: EU (occurrence: EU)
  Receive Date: 20230713
  Receipt Date: 20251118
  Transmission Date: 20260119
  Serious: Yes (Hospitalization, Disabling, Other)
  Sender: EMD SERONO INC
  Company Number: None

PATIENT
  Age: 83 Year
  Sex: Female
  Weight: 91 kg

DRUGS (73)
  1. LEVOTHYROXINE SODIUM [Suspect]
     Active Substance: LEVOTHYROXINE SODIUM
     Indication: Product used for unknown indication
  2. LEVOTHYROXINE SODIUM [Suspect]
     Active Substance: LEVOTHYROXINE SODIUM
     Dosage: 40 MILLIGRAM DAILY
  3. LEVOTHYROXINE [Interacting]
     Active Substance: LEVOTHYROXINE
     Indication: Product used for unknown indication
     Dosage: 100 UG, 1X PER DAY, IN THE MORNING
  4. METFORMIN [Interacting]
     Active Substance: METFORMIN HYDROCHLORIDE
     Indication: Type 2 diabetes mellitus
  5. DONEPEZIL [Suspect]
     Active Substance: DONEPEZIL
     Indication: Product used for unknown indication
  6. GLICLAZIDE [Suspect]
     Active Substance: GLICLAZIDE
     Indication: Product used for unknown indication
     Dosage: 60 MG, 3X PER DAY
  7. ISOSORBIDE MONONITRATE [Suspect]
     Active Substance: ISOSORBIDE MONONITRATE
     Indication: Product used for unknown indication
     Dosage: UNK (50 MG, AD HOC, USUALLY,1-2 TABLETS A DAY)
  8. ISOSORBIDE MONONITRATE [Suspect]
     Active Substance: ISOSORBIDE MONONITRATE
     Indication: Coronary artery disease
  9. OMEPRAZOLE [Suspect]
     Active Substance: OMEPRAZOLE
     Indication: Product used for unknown indication
  10. OMEPRAZOLE [Suspect]
     Active Substance: OMEPRAZOLE
     Dosage: 20 MG, 2X PER DAY
  11. ATORVASTATIN CALCIUM [Suspect]
     Active Substance: ATORVASTATIN CALCIUM
     Indication: Product used for unknown indication
  12. DABIGATRAN [Suspect]
     Active Substance: DABIGATRAN
     Indication: Product used for unknown indication
     Dosage: 40 MILLIGRAM DAILY
  13. DENOSUMAB [Suspect]
     Active Substance: DENOSUMAB
     Indication: Product used for unknown indication
  14. HYDROXYZINE [Suspect]
     Active Substance: HYDROXYZINE HYDROCHLORIDE
     Indication: Product used for unknown indication
     Dosage: 40 MG, QD/1-0-0/25 MG, AD HOC, USUALLY
  15. POTASSIUM CHLORIDE [Suspect]
     Active Substance: POTASSIUM CHLORIDE
     Indication: Product used for unknown indication
     Dosage: 2 DOSAGE FORMS DAILY; 1 TABLET (391 K PLUS) EVERY 2 DAYS (1 DOSAGE FORMS,1 IN 2 D)
  16. ACETAMINOPHEN [Suspect]
     Active Substance: ACETAMINOPHEN
     Indication: Product used for unknown indication
     Dosage: 40 MILLIGRAM DAILY
  17. ACETAMINOPHEN [Suspect]
     Active Substance: ACETAMINOPHEN
     Dosage: 500 MG, 1X PER DAY, IN THE EVENING
  18. ACETAMINOPHEN [Suspect]
     Active Substance: ACETAMINOPHEN
     Dosage: 500 MG, BID/1-0-1
  19. TORSEMIDE [Suspect]
     Active Substance: TORSEMIDE
     Indication: Product used for unknown indication
  20. BENSERAZIDE\LEVODOPA [Suspect]
     Active Substance: BENSERAZIDE\LEVODOPA
     Indication: Product used for unknown indication
  21. ALPRAZOLAM [Interacting]
     Active Substance: ALPRAZOLAM
     Indication: Depression
     Dosage: 0.5 MG, 2X PER DAY
  22. ALPRAZOLAM [Interacting]
     Active Substance: ALPRAZOLAM
     Indication: Product used for unknown indication
     Dosage: 2 DF, QD/0,5 MG, AD HOC, USUALLY
  23. ATORVASTATIN [Interacting]
     Active Substance: ATORVASTATIN
     Indication: Product used for unknown indication
     Dosage: 20 MG, 1X PER DAY, IN THE EVENING
  24. CITALOPRAM [Interacting]
     Active Substance: CITALOPRAM
     Indication: Depression
  25. CITALOPRAM [Interacting]
     Active Substance: CITALOPRAM
     Dosage: 40 MG, 1X PER DAY, IN THE MORNING
  26. BETAHISTINE [Interacting]
     Active Substance: BETAHISTINE
     Indication: Product used for unknown indication
     Dosage: 24 MG, 1X PER DAY
  27. ALLOPURINOL [Interacting]
     Active Substance: ALLOPURINOL
     Indication: Product used for unknown indication
  28. ALLOPURINOL [Interacting]
     Active Substance: ALLOPURINOL
     Dosage: 100 MG, 1X PER DAY, IN THE EVENING
  29. BETAHISTINE HYDROCHLORIDE [Interacting]
     Active Substance: BETAHISTINE HYDROCHLORIDE
     Indication: Dizziness
  30. BETAHISTINE HYDROCHLORIDE [Interacting]
     Active Substance: BETAHISTINE HYDROCHLORIDE
     Indication: Product used for unknown indication
  31. BETAHISTINE [Interacting]
     Active Substance: BETAHISTINE
     Indication: Product used for unknown indication
     Dosage: 40 MILLIGRAM DAILY
  32. BETAHISTINE [Interacting]
     Active Substance: BETAHISTINE
  33. BETAHISTINE [Interacting]
     Active Substance: BETAHISTINE
  34. DABIGATRAN [Interacting]
     Active Substance: DABIGATRAN
     Indication: Product used for unknown indication
     Dosage: 110 MG, BID/DRUG LIST AT THE ADMISSION
  35. FUROSEMIDE [Interacting]
     Active Substance: FUROSEMIDE
     Indication: Product used for unknown indication
     Dosage: 40 MILLIGRAM, 3 TABLETS EVERY 2 DAYS
  36. DEXTROSE\NIKETHAMIDE [Interacting]
     Active Substance: DEXTROSE\NIKETHAMIDE
     Indication: Product used for unknown indication
     Dosage: 40 MILLIGRAM DAILY
  37. DEXTROSE\NIKETHAMIDE [Interacting]
     Active Substance: DEXTROSE\NIKETHAMIDE
     Dosage: 1.5 MG/125 MG, AS NEEDED
  38. HYDROCHLOROTHIAZIDE [Interacting]
     Active Substance: HYDROCHLOROTHIAZIDE
     Indication: Product used for unknown indication
     Dosage: 25 MG, 1X PER DAY, IN THE MORNING
  39. HYDROXYZINE [Interacting]
     Active Substance: HYDROXYZINE HYDROCHLORIDE
     Indication: Product used for unknown indication
     Dosage: 40 MG, QD/1-0-0/25 MG, AD HOC, USUALLY
  40. HYDROXYZINE [Interacting]
     Active Substance: HYDROXYZINE HYDROCHLORIDE
  41. HYDROXYZINE [Interacting]
     Active Substance: HYDROXYZINE HYDROCHLORIDE
  42. HYDROXYZINE [Interacting]
     Active Substance: HYDROXYZINE HYDROCHLORIDE
     Dosage: DOSAGE SCHEDULE: ON DEMAND, TYPICALLY 2 X/24 H
  43. HYDROXYZINE [Interacting]
     Active Substance: HYDROXYZINE HYDROCHLORIDE
     Dosage: 25 MILLIGRAM, AS NEEDED, AVERAGE 2 X /24 H
  44. HYDROXYZINE [Interacting]
     Active Substance: HYDROXYZINE HYDROCHLORIDE
     Dosage: 2 IOU
  45. METOPROLOL [Interacting]
     Active Substance: METOPROLOL
     Indication: Hypertension
     Dosage: DOSAGE SCHEDULE: 1-0-1
  46. METOPROLOL [Interacting]
     Active Substance: METOPROLOL
     Indication: Type 2 diabetes mellitus
     Dosage: 1-0-1
  47. METOPROLOL [Interacting]
     Active Substance: METOPROLOL
     Dosage: 50 MG, BID/1-0-1/2
  48. METOCLOPRAMIDE [Interacting]
     Active Substance: METOCLOPRAMIDE
     Indication: Constipation
     Dosage: 10 MILLIGRAM, 2 TABLETS AS NEEDED, IN CASE OF CONSTIPATION, BUT FOR MANY MONTHS
  49. NIKETHAMIDE [Interacting]
     Active Substance: NIKETHAMIDE
     Indication: Product used for unknown indication
     Dosage: INTERMITTENTLY
  50. RAMIPRIL [Interacting]
     Active Substance: RAMIPRIL
     Indication: Cardiac failure
     Dosage: 100 MILLIGRAM DAILY
  51. RAMIPRIL [Interacting]
     Active Substance: RAMIPRIL
     Dosage: 5 MG, 1X PER DAY, IN THE MORNING
  52. ALBUTEROL [Interacting]
     Active Substance: ALBUTEROL
     Indication: Product used for unknown indication
  53. ALBUTEROL [Interacting]
     Active Substance: ALBUTEROL
     Indication: Product used for unknown indication
     Dosage: ON DEMAND, INTERMITTENTLY, PRN
  54. SPIRONOLACTONE [Interacting]
     Active Substance: SPIRONOLACTONE
     Indication: Product used for unknown indication
     Dosage: 100 MG, 1X PER DAY
  55. TRAMADOL [Interacting]
     Active Substance: TRAMADOL
     Indication: Pain
     Dosage: 50 MILLIGRAM, IN CASE OF PAIN
  56. TRAMADOL [Interacting]
     Active Substance: TRAMADOL
     Dosage: 100 MG, AS NEEDED 2 TABLETS
  57. TRAMADOL HYDROCHLORIDE [Interacting]
     Active Substance: TRAMADOL HYDROCHLORIDE
     Indication: Product used for unknown indication
     Dosage: 40 MILLIGRAM DAILY
  58. TRAMADOL HYDROCHLORIDE [Interacting]
     Active Substance: TRAMADOL HYDROCHLORIDE
  59. CHOLECALCIFEROL [Interacting]
     Active Substance: CHOLECALCIFEROL
     Indication: Product used for unknown indication
  60. POTASSIUM CHLORIDE [Interacting]
     Active Substance: POTASSIUM CHLORIDE
     Indication: Product used for unknown indication
     Dosage: 391 MG, EVERY OTHER DAY?1 DF EVERY 2 DAYS/391 MG
  61. ZOLPIDEM [Interacting]
     Active Substance: ZOLPIDEM TARTRATE
     Indication: Depression
     Dosage: 10 MG, 1X PER DAY
  62. ZOLPIDEM [Interacting]
     Active Substance: ZOLPIDEM TARTRATE
     Dosage: 100 MG, QD/0-0-1
  63. ZOLPIDEM [Interacting]
     Active Substance: ZOLPIDEM TARTRATE
  64. ACARBOSE [Concomitant]
     Active Substance: ACARBOSE
     Indication: Hyperglycaemia
  65. AMLODIPINE BESYLATE [Concomitant]
     Active Substance: AMLODIPINE BESYLATE
     Indication: Hypertension
  66. DEXTROSE [Concomitant]
     Active Substance: DEXTROSE MONOHYDRATE
     Indication: Product used for unknown indication
     Dosage: INTERMITTENTLY
  67. HYDROXYZINE [Concomitant]
     Active Substance: HYDROXYZINE HYDROCHLORIDE
     Indication: Product used for unknown indication
  68. QUETIAPINE [Concomitant]
     Active Substance: QUETIAPINE
     Indication: Product used for unknown indication
  69. RUFLOXACIN [Concomitant]
     Active Substance: RUFLOXACIN
     Indication: Nasopharyngitis
     Dosage: 1 DOSAGE FORM, BID
  70. HYDROTALCITE [Concomitant]
     Active Substance: HYDROTALCITE
     Indication: Abdominal pain upper
  71. VORTIOXETINE [Concomitant]
     Active Substance: VORTIOXETINE
     Indication: Product used for unknown indication
  72. INSULIN NOS [Concomitant]
     Active Substance: INSULIN NOS
     Indication: Blood glucose abnormal
     Dosage: DAILY
  73. LAN DI [AMLODIPINE BESILATE] [Concomitant]
     Indication: Hypertension

REACTIONS (62)
  - Parkinsonism [Unknown]
  - Dementia [Unknown]
  - Sedation [Recovering/Resolving]
  - Hypoglycaemia [Unknown]
  - Nausea [Unknown]
  - Drug dependence [Unknown]
  - Motor dysfunction [Recovering/Resolving]
  - Constipation [Unknown]
  - Urinary retention [Unknown]
  - Mobility decreased [Recovering/Resolving]
  - Arthralgia [Unknown]
  - Gastric polyps [Unknown]
  - Dizziness [Recovering/Resolving]
  - Atrioventricular block first degree [Recovering/Resolving]
  - Syncope [Recovering/Resolving]
  - Bradykinesia [Unknown]
  - Hypotension [Recovering/Resolving]
  - Muscle rigidity [Unknown]
  - Fall [Recovering/Resolving]
  - Abdominal pain upper [Unknown]
  - Hypotension [Unknown]
  - Hypoglycaemia [Recovered/Resolved]
  - Atrioventricular block first degree [Recovering/Resolving]
  - Hyperkalaemia [Unknown]
  - Cognitive disorder [Unknown]
  - Melaena [Unknown]
  - Hiatus hernia [Unknown]
  - Osteoporosis [Unknown]
  - Hyperglycaemia [Unknown]
  - Peripheral circulatory failure [Unknown]
  - Depression [Unknown]
  - Hyponatraemia [Unknown]
  - Blood creatinine increased [Unknown]
  - General physical health deterioration [Unknown]
  - Orthostatic hypotension [Unknown]
  - Hypotonia [Recovering/Resolving]
  - Blood urea increased [Unknown]
  - Dementia [Unknown]
  - Blood potassium increased [Unknown]
  - Dysuria [Unknown]
  - Neuroglycopenia [Unknown]
  - Blood creatine increased [Unknown]
  - Blood pressure decreased [Unknown]
  - Depression [Unknown]
  - Diabetes mellitus inadequate control [Unknown]
  - Blood cholesterol decreased [Unknown]
  - Hypotonia [Unknown]
  - Melaena [Unknown]
  - Gastrointestinal disorder [Unknown]
  - Abdominal pain upper [Unknown]
  - Dysuria [Unknown]
  - Stupor [Unknown]
  - Hypertension [Unknown]
  - Arthralgia [Unknown]
  - Initial insomnia [Unknown]
  - Atrial fibrillation [Unknown]
  - Pruritus [Unknown]
  - Insomnia [Unknown]
  - Pruritus [Unknown]
  - Insomnia [Unknown]
  - Off label use [Unknown]
  - Hypoglycaemia [Unknown]

NARRATIVE: CASE EVENT DATE: 20210101
